FAERS Safety Report 20452849 (Version 5)
Quarter: 2022Q3

REPORT INFORMATION
  Report Type: Spontaneous
  Country: JP (occurrence: JP)
  Receive Date: 20220210
  Receipt Date: 20220826
  Transmission Date: 20221027
  Serious: Yes (Other)
  Sender: FDA-Public Use
  Company Number: JP-GSKNCCC-Case-01416963_AE-54617

PATIENT

DRUGS (15)
  1. LAMICTAL [Suspect]
     Active Substance: LAMOTRIGINE
     Indication: Epilepsy
     Dosage: 4 MG, QOD, ONCE/DAY
     Dates: start: 20181015, end: 20181216
  2. LAMICTAL [Suspect]
     Active Substance: LAMOTRIGINE
     Dosage: 4 MG, BID
     Dates: start: 20181217, end: 20190120
  3. LAMICTAL [Suspect]
     Active Substance: LAMOTRIGINE
     Dosage: 5 MG, BID
     Dates: start: 20190121, end: 20190218
  4. LAMICTAL [Suspect]
     Active Substance: LAMOTRIGINE
     Dosage: 7 MG, BID
     Dates: start: 20190219, end: 20190318
  5. LAMICTAL [Suspect]
     Active Substance: LAMOTRIGINE
     Dosage: 9 MG, BID
     Dates: start: 20190319, end: 20190415
  6. LAMICTAL [Suspect]
     Active Substance: LAMOTRIGINE
     Dosage: 12.5 MG, BID
     Dates: start: 20190416, end: 20190721
  7. LAMICTAL [Suspect]
     Active Substance: LAMOTRIGINE
     Dosage: 15 MG, BID
     Dates: start: 20190722, end: 20190818
  8. LAMICTAL [Suspect]
     Active Substance: LAMOTRIGINE
     Dosage: 20 MG, BID
     Dates: start: 20190819, end: 20191222
  9. LAMICTAL [Suspect]
     Active Substance: LAMOTRIGINE
     Dosage: 25 MG, BID
     Dates: start: 20191223, end: 20200302
  10. LAMICTAL [Suspect]
     Active Substance: LAMOTRIGINE
     Dosage: 30 MG, BID
     Dates: start: 20200303, end: 20200329
  11. LAMICTAL [Suspect]
     Active Substance: LAMOTRIGINE
     Dosage: 35 MG, BID
     Dates: start: 20200330, end: 20200705
  12. LAMICTAL [Suspect]
     Active Substance: LAMOTRIGINE
     Dosage: 40 MG, BID
     Dates: start: 20200706, end: 20201012
  13. LAMICTAL [Suspect]
     Active Substance: LAMOTRIGINE
     Dosage: 50 MG, BID
     Dates: start: 20201013
  14. VALPROATE SODIUM [Concomitant]
     Active Substance: VALPROATE SODIUM
     Indication: Epilepsy
     Dosage: 300 MG/DAY
  15. LEVETIRACETAM [Concomitant]
     Active Substance: LEVETIRACETAM
     Indication: Epilepsy
     Dosage: UNK

REACTIONS (4)
  - Deafness [Not Recovered/Not Resolved]
  - Product use issue [Unknown]
  - Prescribed underdose [Unknown]
  - Off label use [Unknown]

NARRATIVE: CASE EVENT DATE: 20220207
